FAERS Safety Report 14839453 (Version 2)
Quarter: 2018Q2

REPORT INFORMATION
  Report Type: Report from Study
  Country: CZ (occurrence: CZ)
  Receive Date: 20180502
  Receipt Date: 20180530
  Transmission Date: 20180711
  Serious: Yes (Other)
  Sender: FDA-Public Use
  Company Number: CZ-TEVA-2018-CZ-886648

PATIENT
  Age: 58 Year
  Sex: Male

DRUGS (21)
  1. AFLIBERCEPT [Suspect]
     Active Substance: AFLIBERCEPT
     Route: 041
     Dates: start: 20141124, end: 20141124
  2. AFLIBERCEPT [Suspect]
     Active Substance: AFLIBERCEPT
     Indication: COLORECTAL CANCER METASTATIC
     Route: 041
     Dates: start: 20141110, end: 20141110
  3. QUAMATEL [Concomitant]
     Active Substance: FAMOTIDINE
     Indication: PROPHYLAXIS
     Route: 065
     Dates: start: 20141110, end: 20141110
  4. KALII CHLORIDUM [Concomitant]
     Indication: PROPHYLAXIS
     Route: 065
     Dates: start: 201407
  5. APAURIN [Concomitant]
     Active Substance: DIAZEPAM
     Route: 065
     Dates: start: 20141124, end: 20141124
  6. 5-FU [Suspect]
     Active Substance: FLUOROURACIL
     Route: 040
     Dates: start: 20141110, end: 20141110
  7. ATROPIN [Concomitant]
     Active Substance: ATROPINE
     Route: 065
     Dates: start: 20141110, end: 20141110
  8. KALII CHLORIDUM [Concomitant]
     Route: 065
     Dates: start: 20141120
  9. QUAMATEL [Concomitant]
     Active Substance: FAMOTIDINE
     Route: 065
     Dates: start: 20141208, end: 20141208
  10. ZOLSANA [Concomitant]
     Route: 065
     Dates: start: 201403
  11. 5-FU [Suspect]
     Active Substance: FLUOROURACIL
     Route: 040
     Dates: start: 20141124, end: 20141124
  12. 5-FU [Suspect]
     Active Substance: FLUOROURACIL
     Route: 048
     Dates: start: 20141110, end: 20141110
  13. QUAMATEL [Concomitant]
     Active Substance: FAMOTIDINE
     Route: 065
     Dates: start: 20141124, end: 20141124
  14. IRINOTECAN [Suspect]
     Active Substance: IRINOTECAN
     Route: 041
     Dates: start: 20141110, end: 20141110
  15. ATROPIN [Concomitant]
     Active Substance: ATROPINE
     Indication: PROPHYLAXIS
     Route: 065
     Dates: start: 20141208, end: 20141208
  16. ATROPIN [Concomitant]
     Active Substance: ATROPINE
     Route: 065
     Dates: start: 20141124, end: 20141124
  17. APAURIN [Concomitant]
     Active Substance: DIAZEPAM
     Indication: PROPHYLAXIS
     Route: 065
     Dates: start: 20141110, end: 20141110
  18. 5-FU [Suspect]
     Active Substance: FLUOROURACIL
     Indication: COLORECTAL CANCER METASTATIC
     Route: 042
     Dates: start: 20141124, end: 20141124
  19. IRINOTECAN [Suspect]
     Active Substance: IRINOTECAN
     Indication: COLORECTAL CANCER METASTATIC
     Route: 041
     Dates: start: 20141124, end: 20141124
  20. LEVOLEUCOVORIN. [Suspect]
     Active Substance: LEVOLEUCOVORIN
     Indication: COLORECTAL CANCER METASTATIC
     Route: 041
     Dates: start: 20141124, end: 20141124
  21. LEVOLEUCOVORIN. [Suspect]
     Active Substance: LEVOLEUCOVORIN
     Route: 041
     Dates: start: 20141110, end: 20141110

REACTIONS (3)
  - Off label use [Unknown]
  - Neutropenia [Recovered/Resolved]
  - Hypertension [Recovered/Resolved]

NARRATIVE: CASE EVENT DATE: 20141124
